FAERS Safety Report 14274711 (Version 11)
Quarter: 2018Q3

REPORT INFORMATION
  Report Type: Report from Study
  Country: CA (occurrence: CA)
  Receive Date: 20171212
  Receipt Date: 20180829
  Transmission Date: 20181010
  Serious: Yes (Hospitalization)
  Sender: FDA-Public Use
  Company Number: CA-TAKEDA-2017TUS005162

PATIENT
  Age: 33 Year
  Sex: Male

DRUGS (7)
  1. VEDOLIZUMAB [Suspect]
     Active Substance: VEDOLIZUMAB
     Dosage: 300 MG, Q4WEEKS
     Route: 042
     Dates: start: 20180501
  2. VEDOLIZUMAB [Suspect]
     Active Substance: VEDOLIZUMAB
     Dosage: 300 MG, UNK
     Route: 042
     Dates: start: 20170727
  3. SALOFALK                           /00000301/ [Concomitant]
     Active Substance: MESALAMINE
     Dosage: UNK
  4. VEDOLIZUMAB [Suspect]
     Active Substance: VEDOLIZUMAB
     Indication: COLITIS ULCERATIVE
     Dosage: 300 MG, UNK
     Route: 042
     Dates: start: 20161129
  5. PREDNISONE. [Concomitant]
     Active Substance: PREDNISONE
     Dosage: UNK
  6. CORTISONE [Concomitant]
     Active Substance: CORTISONE\HYDROCORTISONE
     Dosage: UNK
  7. MEZAVANT [Concomitant]
     Active Substance: MESALAMINE
     Dosage: UNK

REACTIONS (15)
  - Abdominal pain [Not Recovered/Not Resolved]
  - Blood pressure increased [Unknown]
  - Asthenia [Recovering/Resolving]
  - Diarrhoea haemorrhagic [Unknown]
  - Frequent bowel movements [Not Recovered/Not Resolved]
  - Off label use [Unknown]
  - Abdominal pain upper [Not Recovered/Not Resolved]
  - General physical health deterioration [Unknown]
  - Weight fluctuation [Unknown]
  - Colitis ulcerative [Not Recovered/Not Resolved]
  - Haematochezia [Not Recovered/Not Resolved]
  - Dehydration [Unknown]
  - Malaise [Unknown]
  - Drug effect incomplete [Unknown]
  - Nausea [Not Recovered/Not Resolved]

NARRATIVE: CASE EVENT DATE: 2017
